FAERS Safety Report 5338395-7 (Version None)
Quarter: 2007Q2

REPORT INFORMATION
  Report Type: 
  Country: None (occurrence: None)
  Receive Date: 20070530
  Receipt Date: 20070518
  Transmission Date: 20071010
  Serious: Yes (Other)
  Sender: FDA-Public Use
  Company Number: US-ELI_LILLY_AND_COMPANY-US200703003662

PATIENT
  Age: 57 Year
  Sex: Female
  Weight: 54 kg

DRUGS (3)
  1. HUMALOG [Suspect]
     Dosage: UNK, UNKNOWN
  2. LANTUS [Concomitant]
     Indication: DIABETES MELLITUS INSULIN-DEPENDENT
     Dosage: 3 U, UNK
  3. SYNTHROID [Concomitant]

REACTIONS (11)
  - ASTHENIA [None]
  - BLOOD GLUCOSE DECREASED [None]
  - BLOOD GLUCOSE INCREASED [None]
  - COUGH [None]
  - DECREASED APPETITE [None]
  - DIABETIC COMA [None]
  - DIARRHOEA [None]
  - MALAISE [None]
  - PNEUMONIA PRIMARY ATYPICAL [None]
  - VIRAL INFECTION [None]
  - VOMITING [None]
